FAERS Safety Report 16592354 (Version 1)
Quarter: 2019Q3

REPORT INFORMATION
  Report Type: Spontaneous
  Country: US (occurrence: US)
  Receive Date: 20190718
  Receipt Date: 20190718
  Transmission Date: 20191004
  Serious: No
  Sender: FDA-Public Use
  Company Number: PHEH2019US029122

PATIENT
  Sex: Female

DRUGS (1)
  1. CHOLESTYRAMINE FOR ORAL SUSPENSION USP [Suspect]
     Active Substance: CHOLESTYRAMINE
     Indication: GASTROINTESTINAL DISORDER
     Dosage: 4 G, QD
     Route: 065
     Dates: start: 20190704

REACTIONS (5)
  - Somnolence [Unknown]
  - Lethargy [Unknown]
  - Feeling abnormal [Unknown]
  - Fatigue [Unknown]
  - Incorrect dose administered [Unknown]
